FAERS Safety Report 23890792 (Version 1)
Quarter: 2024Q2

REPORT INFORMATION
  Report Type: Spontaneous
  Country: US (occurrence: None)
  Receive Date: 20240523
  Receipt Date: 20240523
  Transmission Date: 20240716
  Serious: Yes (Other)
  Sender: FDA-Public Use
  Company Number: None

PATIENT
  Age: 43 Year
  Sex: Female
  Weight: 149.4 kg

DRUGS (2)
  1. TALTZ [Suspect]
     Active Substance: IXEKIZUMAB
     Indication: Psoriatic arthropathy
     Dosage: FREQUENCY : MONTHLY;?
     Route: 058
     Dates: start: 20230810
  2. METHOTREXATE [Suspect]
     Active Substance: METHOTREXATE
     Dates: start: 20230104

REACTIONS (2)
  - Exposure during pregnancy [None]
  - Abortion spontaneous [None]

NARRATIVE: CASE EVENT DATE: 20240423
